FAERS Safety Report 6250758-4 (Version None)
Quarter: 2009Q2

REPORT INFORMATION
  Report Type: 
  Country: None (occurrence: None)
  Receive Date: 20090630
  Receipt Date: 20080917
  Transmission Date: 20091009
  Serious: No
  Sender: FDA-Public Use
  Company Number: US-ABBOTT-08P-163-0476934-00

PATIENT
  Sex: Male

DRUGS (11)
  1. ZEMPLAR [Suspect]
     Indication: HYPERPARATHYROIDISM
     Dates: start: 20080916
  2. COLCHICINE [Concomitant]
     Indication: DRUG USE FOR UNKNOWN INDICATION
  3. SIMVASTATIN [Concomitant]
     Indication: DRUG USE FOR UNKNOWN INDICATION
  4. APRESELUM [Concomitant]
     Indication: DRUG USE FOR UNKNOWN INDICATION
  5. TRIMADOL [Concomitant]
     Indication: DRUG USE FOR UNKNOWN INDICATION
  6. OMEPRAZOLE [Concomitant]
     Indication: DRUG USE FOR UNKNOWN INDICATION
  7. BENICAR HCT [Concomitant]
     Indication: DRUG USE FOR UNKNOWN INDICATION
  8. AMILODIPINE [Concomitant]
     Indication: DRUG USE FOR UNKNOWN INDICATION
  9. DOXAZOSIN MESYLATE [Concomitant]
     Indication: DRUG USE FOR UNKNOWN INDICATION
  10. UNKNOWN MEDICATION [Concomitant]
     Indication: BLOOD PRESSURE
  11. UNKNOWN MEDICATION [Concomitant]

REACTIONS (2)
  - DIZZINESS [None]
  - HYPOTENSION [None]
